FAERS Safety Report 4723584-2 (Version None)
Quarter: 2005Q3

REPORT INFORMATION
  Report Type: 
  Country: None (occurrence: None)
  Receive Date: 20050725
  Receipt Date: 20050714
  Transmission Date: 20060218
  Serious: Yes (Hospitalization)
  Sender: FDA-Public Use
  Company Number: US-MERCK-0507USA01950

PATIENT
  Age: 70 Year
  Sex: Female

DRUGS (3)
  1. VIOXX [Suspect]
     Route: 048
     Dates: end: 20040101
  2. PLAVIX [Concomitant]
     Route: 065
  3. FOSAMAX [Concomitant]
     Route: 048

REACTIONS (1)
  - AMNESIA [None]
